FAERS Safety Report 7289873-5 (Version None)
Quarter: 2011Q1

REPORT INFORMATION
  Report Type: 
  Country: None (occurrence: None)
  Receive Date: 20110214
  Receipt Date: 20110201
  Transmission Date: 20110831
  Serious: Yes (Hospitalization)
  Sender: FDA-Public Use
  Company Number: AU-JNJFOC-20110203297

PATIENT
  Sex: Female
  Weight: 110 kg

DRUGS (18)
  1. SERTRALINE HYDROCHLORIDE [Concomitant]
     Route: 048
  2. LYCLEAR [Concomitant]
     Route: 061
  3. DERMAIDE [Concomitant]
     Route: 061
  4. PARACETAMOL [Concomitant]
     Route: 048
  5. FOLIC ACID [Concomitant]
     Route: 048
  6. CELEBREX [Concomitant]
     Route: 048
  7. METHOTREXATE [Concomitant]
     Route: 048
  8. METHOTREXATE [Suspect]
     Indication: RHEUMATOID ARTHRITIS
     Route: 048
  9. SERETIDE [Concomitant]
     Route: 055
  10. ALBUTEROL [Concomitant]
     Route: 055
  11. METHOTREXATE [Concomitant]
     Route: 048
  12. GOLIMUMAB [Suspect]
     Indication: RHEUMATOID ARTHRITIS
     Route: 058
  13. GOLIMUMAB [Suspect]
     Route: 058
  14. LEVLEN ED [Concomitant]
     Route: 048
  15. TELFAST [Concomitant]
     Route: 048
  16. PANADEINE FORTE [Concomitant]
     Route: 048
  17. CODALGIN PLUS [Concomitant]
     Route: 048
  18. PANADOL OSTEO [Concomitant]
     Route: 048

REACTIONS (1)
  - PNEUMONIA [None]
